FAERS Safety Report 9405810 (Version 2)
Quarter: 2013Q3

REPORT INFORMATION
  Report Type: Spontaneous
  Country: CA (occurrence: CA)
  Receive Date: 20130717
  Receipt Date: 20130726
  Transmission Date: 20140515
  Serious: Yes (Hospitalization)
  Sender: FDA-Public Use
  Company Number: CA-GLAXOSMITHKLINE-A1031804A

PATIENT
  Age: 38 Year
  Sex: Female

DRUGS (1)
  1. VOTRIENT [Suspect]
     Indication: SARCOMA
     Dosage: 800MG PER DAY
     Route: 065

REACTIONS (7)
  - Dyspnoea [Unknown]
  - Chest pain [Recovering/Resolving]
  - Dysstasia [Unknown]
  - Oesophageal pain [Not Recovered/Not Resolved]
  - Arthralgia [Recovered/Resolved]
  - Musculoskeletal pain [Unknown]
  - Back pain [Unknown]
